FAERS Safety Report 5288994-6 (Version None)
Quarter: 2007Q2

REPORT INFORMATION
  Report Type: 
  Country: None (occurrence: None)
  Receive Date: 20070405
  Receipt Date: 20070328
  Transmission Date: 20071010
  Serious: Yes (Hospitalization)
  Sender: FDA-Public Use
  Company Number: AU-PFIZER INC-2007021472

PATIENT
  Sex: Male
  Weight: 97 kg

DRUGS (20)
  1. IDARUBICIN HCL [Suspect]
     Indication: ACUTE MYELOID LEUKAEMIA
     Dates: start: 20070306, end: 20070307
  2. CYTARABINE [Suspect]
     Indication: ACUTE MYELOID LEUKAEMIA
     Route: 042
     Dates: start: 20070306, end: 20070311
  3. ETOPOSIDE [Suspect]
     Indication: ACUTE MYELOID LEUKAEMIA
     Route: 042
     Dates: start: 20070306, end: 20070310
  4. PEGFILGRASTIM [Suspect]
     Indication: ACUTE MYELOID LEUKAEMIA
     Route: 058
     Dates: start: 20070312, end: 20070312
  5. ACYCLOVIR [Concomitant]
  6. FLUCONAZOLE [Concomitant]
  7. PANTOPRAZOLE [Concomitant]
  8. NYSTATIN [Concomitant]
  9. POTASSIUM CHLORIDE [Concomitant]
  10. SODIUM BICARBONATE [Concomitant]
  11. BENZYDAMINE [Concomitant]
  12. PHYTOMENADIONE [Concomitant]
  13. LACTULOSE [Concomitant]
  14. COLOXYL WITH SENNA [Concomitant]
  15. MAGNESIUM PHOSPHATE [Concomitant]
  16. CALCIUM ASCORBATE [Concomitant]
  17. CHOLECALCIFEROL/RETINOL ACETATE [Concomitant]
  18. MAGNESIUM OXIDE [Concomitant]
  19. MANGANESE [Concomitant]
  20. PYRIDOXINE HYDROCHLORIDE [Concomitant]

REACTIONS (2)
  - ANAEMIA [None]
  - FEBRILE NEUTROPENIA [None]
